FAERS Safety Report 5123790-1 (Version None)
Quarter: 2006Q4

REPORT INFORMATION
  Report Type: 
  Country: None (occurrence: None)
  Receive Date: 20061010
  Receipt Date: 20060105
  Transmission Date: 20070319
  Serious: Yes (Other)
  Sender: FDA-Public Use
  Company Number: US-AVENTIS-200610293US

PATIENT
  Sex: Female

DRUGS (3)
  1. LOVENOX [Suspect]
     Indication: COAGULOPATHY
     Dates: end: 20030101
  2. PROCARDIA [Concomitant]
     Dosage: DOSE: UNK
  3. BETA BLOCKING AGENTS [Concomitant]
     Dosage: DOSE: UNK

REACTIONS (3)
  - ASPERGILLOSIS [None]
  - CANDIDIASIS [None]
  - FUNGAL INFECTION [None]
